FAERS Safety Report 6501442-0 (Version None)
Quarter: 2009Q4

REPORT INFORMATION
  Report Type: 
  Country: None (occurrence: None)
  Receive Date: 20091215
  Receipt Date: 20091215
  Transmission Date: 20100525
  Serious: Yes (Hospitalization)
  Sender: FDA-Public Use
  Company Number: None

PATIENT
  Age: 36 Year
  Sex: Female
  Weight: 70 kg

DRUGS (1)
  1. SEASONIQUE [Suspect]
     Indication: CONTRACEPTION
     Dosage: 1 TABLET DAILY PO
     Route: 048
     Dates: start: 20091030, end: 20091212

REACTIONS (2)
  - COUGH [None]
  - HEADACHE [None]
